FAERS Safety Report 15412411 (Version 1)
Quarter: 2018Q3

REPORT INFORMATION
  Report Type: Spontaneous
  Country: JP (occurrence: JP)
  Receive Date: 20180921
  Receipt Date: 20180921
  Transmission Date: 20181010
  Serious: Yes (Hospitalization, Other)
  Sender: FDA-Public Use
  Company Number: JP-BAYER-2018-171774

PATIENT
  Age: 77 Year
  Sex: Male

DRUGS (5)
  1. BAYASPIRIN 100 MG [Suspect]
     Active Substance: ASPIRIN
     Indication: ATRIAL FIBRILLATION
     Route: 048
  2. EDOXABAN [Interacting]
     Active Substance: EDOXABAN TOSYLATE
     Indication: ATRIAL FIBRILLATION
     Dosage: UNK
     Route: 048
  3. BAYASPIRIN 100 MG [Interacting]
     Active Substance: ASPIRIN
     Indication: ANALGESIC THERAPY
  4. EDOXABAN [Interacting]
     Active Substance: EDOXABAN TOSYLATE
     Indication: ANALGESIC THERAPY
     Dosage: 270 MG
     Route: 048
  5. BAYASPIRIN 100 MG [Interacting]
     Active Substance: ASPIRIN
     Indication: ANGINA UNSTABLE
     Dosage: 900 MG
     Route: 048

REACTIONS (8)
  - Product use in unapproved indication [None]
  - Accidental overdose [None]
  - Bleeding time prolonged [None]
  - Pharyngeal haemorrhage [None]
  - Epistaxis [None]
  - Labelled drug-drug interaction medication error [None]
  - Cholecystitis [None]
  - Haemobilia [None]
